FAERS Safety Report 11228858 (Version 1)
Quarter: 2015Q2

REPORT INFORMATION
  Report Type: Spontaneous
  Country: US (occurrence: US)
  Receive Date: 20150630
  Receipt Date: 20150630
  Transmission Date: 20150821
  Serious: Yes (Other)
  Sender: FDA-Public Use
  Company Number: US-MYLANLABS-2015M1021654

PATIENT

DRUGS (15)
  1. VORICONAZOLE. [Suspect]
     Active Substance: VORICONAZOLE
     Route: 048
  2. ROPIVACAINE [Interacting]
     Active Substance: ROPIVACAINE
     Dosage: 0.2% COMMENCED AT INFUSION RATE 6 ML/H (0.1 ML/KG)
     Route: 050
  3. GABAPENTIN. [Concomitant]
     Active Substance: GABAPENTIN
     Indication: PRODUCT USED FOR UNKNOWN INDICATION
     Route: 065
  4. VORICONAZOLE. [Suspect]
     Active Substance: VORICONAZOLE
     Indication: PRODUCT USED FOR UNKNOWN INDICATION
     Route: 042
  5. ROPIVACAINE [Interacting]
     Active Substance: ROPIVACAINE
     Dosage: INFUSION RATE INCREASED TO 8 ML/H ON POD 3
     Route: 050
  6. EPINEPHRINE. [Concomitant]
     Active Substance: EPINEPHRINE
     Indication: PRODUCT USED FOR UNKNOWN INDICATION
     Dosage: 1:400000
     Route: 065
  7. ROPIVACAINE [Interacting]
     Active Substance: ROPIVACAINE
     Dosage: INFUSION RATE INCREASED TO 10 ML/H ON POD 4
     Route: 050
  8. ROPIVACAINE [Interacting]
     Active Substance: ROPIVACAINE
     Dosage: BOLUSED WITH 6 ML OF 0.2%
     Route: 065
  9. ROPIVACAINE [Interacting]
     Active Substance: ROPIVACAINE
     Dosage: ON POD 3 AND 4, BOLUSED WITH 8 ML OF 0.2%
     Route: 065
  10. ROPIVACAINE [Interacting]
     Active Substance: ROPIVACAINE
     Dosage: SINGLE-SHOT SAPHENOUS BLOCK WITH 15ML OF 0.5%
     Route: 065
  11. BUPIVACAINE [Concomitant]
     Active Substance: BUPIVACAINE
     Dosage: NERVE CATHETER; 18 ML OF 0.5%
     Route: 065
  12. BUPIVACAINE [Concomitant]
     Active Substance: BUPIVACAINE
     Indication: PRODUCT USED FOR UNKNOWN INDICATION
     Dosage: SINGLE-SHOT; 8MLOF 0.5%
     Route: 065
  13. EPINEPHRINE. [Concomitant]
     Active Substance: EPINEPHRINE
     Dosage: BOLUSED WITH 8 ML OF 0.2%, AND INFUSION RATE INCREASED TO 8 ML/H
     Route: 050
  14. ROPIVACAINE [Interacting]
     Active Substance: ROPIVACAINE
     Indication: ANALGESIC THERAPY
     Dosage: SINGLE-SHOT SCIATIC BLOCK WITH 20ML OF 0.5%
     Route: 065
  15. KETAMINE [Concomitant]
     Active Substance: KETAMINE
     Indication: PRODUCT USED FOR UNKNOWN INDICATION
     Route: 065

REACTIONS (7)
  - Drug interaction [Recovering/Resolving]
  - Dysgeusia [Recovered/Resolved]
  - Visual impairment [Recovered/Resolved]
  - Dizziness [Recovered/Resolved]
  - Illusion [Not Recovered/Not Resolved]
  - Diplopia [Recovered/Resolved]
  - Toxicity to various agents [Unknown]
